FAERS Safety Report 9703944 (Version 4)
Quarter: 2014Q2

REPORT INFORMATION
  Report Type: Report from Study
  Country: US (occurrence: US)
  Receive Date: 20131122
  Receipt Date: 20140610
  Transmission Date: 20141212
  Serious: Yes (Other)
  Sender: FDA-Public Use
  Company Number: US-ROCHE-1307563

PATIENT
  Age: 66 Year
  Sex: Female

DRUGS (3)
  1. LUCENTIS [Suspect]
     Indication: DIABETIC RETINAL OEDEMA
     Route: 065
     Dates: start: 201310
  2. LISINOPRIL [Concomitant]
     Indication: HYPERTENSION
     Route: 065
  3. METFORMIN [Concomitant]
     Indication: DIABETES MELLITUS
     Route: 065

REACTIONS (9)
  - Blindness [Not Recovered/Not Resolved]
  - Road traffic accident [Unknown]
  - Disability [Unknown]
  - Vision blurred [Not Recovered/Not Resolved]
  - Vitreous floaters [Unknown]
  - Pain in extremity [Unknown]
  - General physical health deterioration [Unknown]
  - Pain [Unknown]
  - Drug ineffective [Unknown]
